FAERS Safety Report 12781894 (Version 2)
Quarter: 2016Q4

REPORT INFORMATION
  Report Type: Spontaneous
  Country: US (occurrence: US)
  Receive Date: 20160926
  Receipt Date: 20161007
  Transmission Date: 20170207
  Serious: No
  Sender: FDA-Public Use
  Company Number: US-009507513-1609USA002084

PATIENT
  Sex: Female

DRUGS (3)
  1. QUESTRAN [Concomitant]
     Active Substance: CHOLESTYRAMINE
     Dosage: UNK
  2. ENTEREG [Suspect]
     Active Substance: ALVIMOPAN
     Indication: INTESTINAL RESECTION
     Dosage: UNK
     Route: 048
  3. IMODIUM [Concomitant]
     Active Substance: LOPERAMIDE HYDROCHLORIDE
     Dosage: UNK

REACTIONS (1)
  - Functional gastrointestinal disorder [Unknown]
